FAERS Safety Report 9418263 (Version 2)
Quarter: 2013Q4

REPORT INFORMATION
  Report Type: Spontaneous
  Country: FR (occurrence: FR)
  Receive Date: 20130724
  Receipt Date: 20131016
  Transmission Date: 20140711
  Serious: Yes (Hospitalization)
  Sender: FDA-Public Use
  Company Number: FR-ALLERGAN-1310800US

PATIENT
  Age: 67 Year
  Sex: Female

DRUGS (2)
  1. ALPHAGAN 0,2% (2MG/ML), COLLYRE EN SOLUTION [Suspect]
     Indication: GLAUCOMA
     Dosage: 1 DROP IN EACH EYE IN THE MORNING
     Route: 047
  2. XALATAN [Concomitant]
     Indication: GLAUCOMA
     Dosage: IN THE EVENING

REACTIONS (4)
  - Fracture [Recovered/Resolved]
  - Injury [Recovered/Resolved]
  - Fall [Recovered/Resolved]
  - Syncope [Recovered/Resolved]
